FAERS Safety Report 5412164-1 (Version None)
Quarter: 2007Q3

REPORT INFORMATION
  Report Type: 
  Country: None (occurrence: None)
  Receive Date: 20070713
  Receipt Date: 20070516
  Transmission Date: 20080115
  Serious: No
  Sender: FDA-Public Use
  Company Number: 2007SP001829

PATIENT
  Age: 73 Year
  Sex: Female
  Weight: 57.1532 kg

DRUGS (6)
  1. LUNESTA [Suspect]
     Indication: INSOMNIA
     Dosage: 1 MG; ORAL, 2 MG; ORAL, 1.5 MG; ORAL
     Route: 048
     Dates: start: 20070201, end: 20070201
  2. LUNESTA [Suspect]
     Indication: INSOMNIA
     Dosage: 1 MG; ORAL, 2 MG; ORAL, 1.5 MG; ORAL
     Route: 048
     Dates: start: 20070301, end: 20070301
  3. LUNESTA [Suspect]
     Indication: INSOMNIA
     Dosage: 1 MG; ORAL, 2 MG; ORAL, 1.5 MG; ORAL
     Route: 048
     Dates: start: 20070401
  4. ASPIRIN [Concomitant]
  5. WARFARIN SODIUM [Concomitant]
  6. VITAMINS [Concomitant]

REACTIONS (4)
  - DRUG INEFFECTIVE [None]
  - DYSGEUSIA [None]
  - MIDDLE INSOMNIA [None]
  - SOMNOLENCE [None]
